FAERS Safety Report 25396059 (Version 2)
Quarter: 2025Q2

REPORT INFORMATION
  Report Type: Report from Study
  Country: CO (occurrence: CO)
  Receive Date: 20250604
  Receipt Date: 20250619
  Transmission Date: 20250716
  Serious: Yes (Other)
  Sender: JOHNSON AND JOHNSON
  Company Number: CO-JNJFOC-20240912875

PATIENT
  Age: 42 Year
  Sex: Male
  Weight: 61 kg

DRUGS (2)
  1. TREMFYA [Suspect]
     Active Substance: GUSELKUMAB
     Indication: Psoriasis
     Route: 058
     Dates: start: 20240826
  2. TREMFYA [Suspect]
     Active Substance: GUSELKUMAB

REACTIONS (7)
  - Hernia [Unknown]
  - Product physical issue [Unknown]
  - Accidental exposure to product [Unknown]
  - Device leakage [Unknown]
  - Product dose omission issue [Unknown]
  - Psoriasis [Not Recovered/Not Resolved]
  - Product use issue [Unknown]

NARRATIVE: CASE EVENT DATE: 20240826
